FAERS Safety Report 12323141 (Version 1)
Quarter: 2016Q2

REPORT INFORMATION
  Report Type: Spontaneous
  Country: CH (occurrence: CH)
  Receive Date: 20160502
  Receipt Date: 20160502
  Transmission Date: 20160815
  Serious: Yes (Other)
  Sender: FDA-Public Use
  Company Number: CH-LPDUSPRD-20160371

PATIENT
  Age: 33 Week
  Sex: Female
  Weight: 2.15 kg

DRUGS (1)
  1. FERINJECT [Suspect]
     Active Substance: FERRIC CARBOXYMALTOSE
     Dosage: 500 MG IN 100 ML NACL
     Route: 064
     Dates: start: 20150626, end: 20150708

REACTIONS (4)
  - Premature baby [Unknown]
  - Foetal monitoring abnormal [Unknown]
  - Foetal exposure during pregnancy [Recovered/Resolved]
  - Foetal growth restriction [Unknown]

NARRATIVE: CASE EVENT DATE: 20150626
